FAERS Safety Report 7875243-5 (Version None)
Quarter: 2011Q4

REPORT INFORMATION
  Report Type: 
  Country: None (occurrence: None)
  Receive Date: 20111031
  Receipt Date: 20111025
  Transmission Date: 20120403
  Serious: Yes (Other)
  Sender: FDA-Public Use
  Company Number: US-AMGEN-USASP2010007154

PATIENT
  Sex: Female

DRUGS (4)
  1. SYNTHROID [Concomitant]
  2. POTASSIUM [Concomitant]
  3. NPLATE [Suspect]
     Indication: IDIOPATHIC THROMBOCYTOPENIC PURPURA
     Dosage: 160 MUG, QWK
     Dates: start: 20101215
  4. IRON [Concomitant]
     Indication: SUPPLEMENTATION THERAPY

REACTIONS (1)
  - LEUKOCYTOSIS [None]
